FAERS Safety Report 10168720 (Version 1)
Quarter: 2014Q2

REPORT INFORMATION
  Report Type: Spontaneous
  Country: US (occurrence: US)
  Receive Date: 20140513
  Receipt Date: 20140513
  Transmission Date: 20141212
  Serious: No
  Sender: FDA-Public Use
  Company Number: US-009507513-1404USA007004

PATIENT
  Age: 55 Year
  Sex: Female

DRUGS (1)
  1. STERILE DILUENT [Suspect]
     Dosage: UNKNOWN

REACTIONS (2)
  - Injury associated with device [Recovered/Resolved]
  - Accidental exposure to product [Unknown]
